FAERS Safety Report 14999279 (Version 1)
Quarter: 2018Q2

REPORT INFORMATION
  Report Type: Spontaneous
  Country: IT (occurrence: IT)
  Receive Date: 20180612
  Receipt Date: 20180612
  Transmission Date: 20180711
  Serious: Yes (Other)
  Sender: FDA-Public Use
  Company Number: IT-ROCHE-2138629

PATIENT
  Age: 71 Year
  Sex: Female
  Weight: 56 kg

DRUGS (7)
  1. HERCEPTIN [Suspect]
     Active Substance: TRASTUZUMAB
     Indication: BREAST NEOPLASM
     Dosage: 150 MG POWDER FOR CONCENTRATE FOR SOLUTION FOR INFUSION
     Route: 042
     Dates: start: 20171013
  2. TARGIN [Concomitant]
     Active Substance: NALOXONE HYDROCHLORIDE\OXYCODONE HYDROCHLORIDE
     Route: 048
  3. DOCETAXEL. [Concomitant]
     Active Substance: DOCETAXEL
     Indication: BREAST CANCER
     Dosage: 160 MG/8 ML CONCENTRATE FOR SOLUTION
     Route: 042
     Dates: start: 20171013
  4. PERJETA [Concomitant]
     Active Substance: PERTUZUMAB
     Indication: BREAST CANCER
     Dosage: 420 MG CONCENTRATE FOR SOLUTION FOR INFUSION
     Route: 042
     Dates: start: 20171012
  5. SELEDIE [Concomitant]
     Dosage: 11.400 UI ANTIXA/0.6 ML
     Route: 065
  6. SOLDESAM [Concomitant]
     Active Substance: DEXAMETHASONE
     Route: 048
  7. ORAMORPH [Concomitant]
     Active Substance: MORPHINE SULFATE
     Dosage: 8 DRP
     Route: 048

REACTIONS (3)
  - Tachycardia [Recovered/Resolved]
  - Tremor [Recovered/Resolved]
  - Extrasystoles [Recovered/Resolved]

NARRATIVE: CASE EVENT DATE: 20171123
